FAERS Safety Report 10051056 (Version 2)
Quarter: 2014Q2

REPORT INFORMATION
  Report Type: Spontaneous
  Country: US (occurrence: US)
  Receive Date: 20140401
  Receipt Date: 20140401
  Transmission Date: 20141212
  Serious: No
  Sender: FDA-Public Use
  Company Number: US-ASTRAZENECA-2002UW08817

PATIENT
  Age: 90 Year
  Sex: Female
  Weight: 45.4 kg

DRUGS (5)
  1. NEXIUM [Suspect]
     Indication: DYSPEPSIA
     Route: 048
     Dates: start: 200203, end: 2002
  2. NEXIUM [Suspect]
     Indication: DYSPEPSIA
     Route: 048
     Dates: start: 2002, end: 2002
  3. NEXIUM [Suspect]
     Indication: DYSPEPSIA
     Route: 048
     Dates: start: 2002
  4. NEXIUM [Suspect]
     Indication: DYSPEPSIA
     Route: 048
     Dates: start: 201308, end: 201310
  5. CALCIUM [Concomitant]

REACTIONS (4)
  - Oropharyngeal pain [Unknown]
  - Weight decreased [Unknown]
  - Rash [Unknown]
  - Off label use [Unknown]
